FAERS Safety Report 10465107 (Version 1)
Quarter: 2014Q3

REPORT INFORMATION
  Report Type: Spontaneous
  Country: CA (occurrence: CA)
  Receive Date: 20140919
  Receipt Date: 20140919
  Transmission Date: 20150326
  Serious: Yes (Death)
  Sender: FDA-Public Use
  Company Number: CA-MYLANLABS-2014M1004701

PATIENT

DRUGS (2)
  1. MORPHINE [Suspect]
     Active Substance: MORPHINE
     Dosage: SMALL DOSES
     Route: 042
  2. HYDROMORPHONE [Suspect]
     Active Substance: HYDROMORPHONE
     Indication: WRONG DRUG ADMINISTERED
     Route: 065

REACTIONS (4)
  - Circulatory collapse [Fatal]
  - Respiratory arrest [Fatal]
  - Wrong drug administered [Fatal]
  - Overdose [Fatal]
